FAERS Safety Report 4295956-4 (Version None)
Quarter: 2004Q1

REPORT INFORMATION
  Report Type: 
  Country: None (occurrence: None)
  Receive Date: 20040212
  Receipt Date: 20040203
  Transmission Date: 20041129
  Serious: Yes (Hospitalization)
  Sender: FDA-Public Use
  Company Number: 04P-087-0249452-00

PATIENT
  Age: 68 Year
  Sex: Male

DRUGS (4)
  1. ISOPTIN [Suspect]
     Indication: MYOCARDIAL ISCHAEMIA
     Dosage: PER ORAL (SEE IMAGE)
     Route: 048
     Dates: start: 20031219, end: 20040121
  2. ISOPTIN [Suspect]
     Indication: MYOCARDIAL ISCHAEMIA
     Dosage: PER ORAL (SEE IMAGE)
     Route: 048
     Dates: start: 20040124, end: 20040126
  3. WARFARIN SODIUM [Concomitant]
  4. ANABOLIC STEROIDS [Concomitant]

REACTIONS (3)
  - ASPARTATE AMINOTRANSFERASE INCREASED [None]
  - HEPATIC FUNCTION ABNORMAL [None]
  - TOXIC SKIN ERUPTION [None]
